FAERS Safety Report 4530433-4 (Version None)
Quarter: 2004Q4

REPORT INFORMATION
  Report Type: 
  Country: None (occurrence: None)
  Receive Date: 20041215
  Receipt Date: 20041206
  Transmission Date: 20050328
  Serious: Yes (Death, Life-Threatening, Hospitalization)
  Sender: FDA-Public Use
  Company Number: 2004-12-0260

PATIENT
  Age: 51 Year
  Sex: Female
  Weight: 74 kg

DRUGS (4)
  1. TEMODAL [Suspect]
     Indication: ANAPLASTIC ASTROCYTOMA
     Dosage: 350 MG QD ORAL
     Route: 048
     Dates: start: 20040726, end: 20040730
  2. METOCLOPRAMIDE [Concomitant]
  3. DIPHENHYDRAMINE [Concomitant]
  4. METAMIZOLE [Concomitant]

REACTIONS (10)
  - ANAEMIA [None]
  - ASTHENIA [None]
  - CIRCULATORY COLLAPSE [None]
  - DIARRHOEA [None]
  - ECCHYMOSIS [None]
  - FLUID INTAKE REDUCED [None]
  - HYPOTENSION [None]
  - PETECHIAE [None]
  - TREATMENT NONCOMPLIANCE [None]
  - VOMITING [None]
